FAERS Safety Report 6717123-4 (Version None)
Quarter: 2010Q2

REPORT INFORMATION
  Report Type: 
  Country: None (occurrence: None)
  Receive Date: 20100510
  Receipt Date: 20100503
  Transmission Date: 20101027
  Serious: Yes (Other)
  Sender: FDA-Public Use
  Company Number: GB-BRISTOL-MYERS SQUIBB COMPANY-15089741

PATIENT
  Age: 2 Year
  Sex: Female

DRUGS (2)
  1. KANAMYCIN SULFATE [Suspect]
     Indication: NEUTROPENIC SEPSIS
     Route: 042
  2. GENTAMICIN [Suspect]
     Indication: NEUTROPENIC SEPSIS
     Route: 042

REACTIONS (1)
  - DEAFNESS BILATERAL [None]
